FAERS Safety Report 8154487-1 (Version None)
Quarter: 2012Q1

REPORT INFORMATION
  Report Type: 
  Country: None (occurrence: None)
  Receive Date: 20120221
  Receipt Date: 20120215
  Transmission Date: 20120608
  Serious: Yes (Hospitalization)
  Sender: FDA-Public Use
  Company Number: US-TEVA-289720USA

PATIENT
  Sex: Male
  Weight: 77 kg

DRUGS (17)
  1. IRINOTECAN HCL [Suspect]
     Indication: NEOPLASM
     Dosage: D 1, D 15 (150 MG/M2,1 IN 2 WK)
     Route: 042
     Dates: start: 20110526
  2. OXYCODONE HYDROCHLORIDE [Concomitant]
     Indication: BACK PAIN
  3. MORNIFLUMATE [Concomitant]
     Indication: HYPERSENSITIVITY
     Dosage: .4 MILLIGRAM;
  4. FINASTERIDE [Concomitant]
     Indication: PRODUCT USED FOR UNKNOWN INDICATION
     Dosage: 5 MILLIGRAM;
  5. LEUCOVORIN CALCIUM [Suspect]
     Indication: NEOPLASM
     Dosage: D I, D 15 OF EACH 28 D CYCLE (400 MG/M2)
     Route: 042
     Dates: start: 20110526
  6. VELIPARIB [Suspect]
     Indication: NEOPLASM
     Dosage: CYCLE 1 DOSED ON D 15-19. CYCLE 2, D 1-5 AND 15-19 (160 MG,2 IN 1 D)
     Route: 048
     Dates: start: 20110609, end: 20110610
  7. FLUOROURACIL [Suspect]
     Dosage: 171.4286 MG/M2;
     Route: 042
     Dates: start: 20110609, end: 20110610
  8. LEVOSALBUTAMOL [Concomitant]
     Indication: DYSPNOEA
     Dosage: 135 MICROGRAM;
     Dates: start: 20110526
  9. FLUOROURACIL [Suspect]
     Indication: NEOPLASM
     Dosage: (3 D INFUSION) 15 OF 28 D CYCLE (24000 MG/M2,1 IN 2 WK)
     Route: 042
     Dates: start: 20110526, end: 20110528
  10. CLONAZEPAM [Concomitant]
     Indication: ANXIETY
     Dosage: 5
  11. ONDANSETRON HCL [Concomitant]
     Indication: NAUSEA
     Dates: start: 20110518
  12. FLUOROURACIL [Suspect]
     Dosage: CYCLE 2 (2400 MG/M2, 1 IN 2 WK)
     Route: 042
     Dates: start: 20110628
  13. PROCHLORPERAZINE MALEATE [Concomitant]
     Indication: NAUSEA
     Dates: start: 20110519
  14. CIRRUS [Concomitant]
     Indication: HYPERSENSITIVITY
     Dosage: 1 TABLET;
  15. VELIPARIB [Suspect]
     Dosage: CYCLE 1 DOSED ON D 15-19. CYCLE 2, D 1-5 AND 15-19 (160 MG,2 IN 1 D)
     Route: 048
     Dates: start: 20110628
  16. ZOLEDRONIC ACID [Concomitant]
     Indication: METASTASES TO BONE
     Dosage: .1429 MILLIGRAM;
     Dates: start: 20100101
  17. AMLODIPINE BESYLATE [Concomitant]
     Indication: PRODUCT USED FOR UNKNOWN INDICATION
     Dosage: 1 TABLET;

REACTIONS (1)
  - NON-CARDIAC CHEST PAIN [None]
